FAERS Safety Report 12411132 (Version 1)
Quarter: 2016Q2

REPORT INFORMATION
  Report Type: Spontaneous
  Country: US (occurrence: None)
  Receive Date: 20160526
  Receipt Date: 20160526
  Transmission Date: 20160815
  Serious: Yes (Other)
  Sender: FDA-Public Use
  Company Number: None

PATIENT
  Age: 69 Year
  Sex: Female
  Weight: 65.77 kg

DRUGS (9)
  1. PROLIA [Suspect]
     Active Substance: DENOSUMAB
     Indication: OSTEOPOROSIS
     Dosage: INJECTION TWICE A YEAR INJECTION
     Dates: start: 20150407, end: 20151013
  2. PROLIA [Suspect]
     Active Substance: DENOSUMAB
     Indication: BONE LOSS
     Dosage: INJECTION TWICE A YEAR INJECTION
     Dates: start: 20150407, end: 20151013
  3. CALCIUM [Concomitant]
     Active Substance: CALCIUM
  4. XANAX [Concomitant]
     Active Substance: ALPRAZOLAM
  5. VITAMIN B12 [Concomitant]
     Active Substance: CYANOCOBALAMIN
  6. VIT. D [Concomitant]
  7. E [Concomitant]
  8. C [Concomitant]
  9. BISTIN [Concomitant]

REACTIONS (2)
  - Pruritus [None]
  - Alopecia [None]

NARRATIVE: CASE EVENT DATE: 2015
